FAERS Safety Report 18511454 (Version 1)
Quarter: 2020Q4

REPORT INFORMATION
  Report Type: Spontaneous
  Country: US (occurrence: US)
  Receive Date: 20201116
  Receipt Date: 20201116
  Transmission Date: 20210114
  Serious: No
  Sender: FDA-Public Use
  Company Number: None

PATIENT
  Age: 2 Year
  Sex: Female

DRUGS (1)
  1. VIGABATRIN 500MG POWDER PACKETS 50/CT [Suspect]
     Active Substance: VIGABATRIN
     Indication: INFANTILE SPASMS
     Route: 048
     Dates: start: 20191113

REACTIONS (3)
  - Culture urine positive [None]
  - Escherichia infection [None]
  - Dysuria [None]

NARRATIVE: CASE EVENT DATE: 20201108
